FAERS Safety Report 7353819-1 (Version None)
Quarter: 2011Q1

REPORT INFORMATION
  Report Type: 
  Country: None (occurrence: None)
  Receive Date: 20110315
  Receipt Date: 20110311
  Transmission Date: 20110831
  Serious: Yes (Other)
  Sender: FDA-Public Use
  Company Number: FR-PFIZER INC-2011054199

PATIENT
  Sex: Male

DRUGS (2)
  1. PLAVIX [Suspect]
  2. LYRICA [Suspect]
     Indication: NEURALGIA

REACTIONS (1)
  - GRANULOCYTOPENIA [None]
